FAERS Safety Report 4451602-8 (Version None)
Quarter: 2004Q3

REPORT INFORMATION
  Report Type: 
  Country: None (occurrence: None)
  Receive Date: 20040915
  Receipt Date: 20040830
  Transmission Date: 20050211
  Serious: Yes (Hospitalization)
  Sender: FDA-Public Use
  Company Number: 2004SP000198

PATIENT
  Age: 66 Year
  Sex: Female

DRUGS (1)
  1. LEVALBUTEROL INHALATION SOLUTION [Suspect]
     Indication: CHRONIC OBSTRUCTIVE AIRWAYS DISEASE
     Dosage: 1.25 MG, Q6H; INHALATION
     Route: 055
     Dates: start: 20040727, end: 20040731

REACTIONS (2)
  - CHRONIC OBSTRUCTIVE AIRWAYS DISEASE EXACERBATED [None]
  - DYSPNOEA [None]
